FAERS Safety Report 21570636 (Version 2)
Quarter: 2022Q4

REPORT INFORMATION
  Report Type: Other
  Country: GB (occurrence: GB)
  Receive Date: 20221109
  Receipt Date: 20221128
  Transmission Date: 20230113
  Serious: Yes (Disabling, Other)
  Sender: FDA-Public Use
  Company Number: None

PATIENT

DRUGS (5)
  1. MONTELUKAST SODIUM [Suspect]
     Active Substance: MONTELUKAST SODIUM
     Indication: Physical examination
     Dosage: 4 MILLIGRAM
     Route: 048
     Dates: start: 20221005, end: 20221019
  2. BECLOMETHASONE DIPROPIONATE [Concomitant]
     Active Substance: BECLOMETHASONE DIPROPIONATE
     Indication: Product used for unknown indication
     Dosage: 1 DOSAGE FORM, QD (100MICROGRAMS/DOSE )
     Route: 065
     Dates: start: 20221011
  3. BECLOMETHASONE DIPROPIONATE [Concomitant]
     Active Substance: BECLOMETHASONE DIPROPIONATE
     Dosage: 1 DOSAGE FORM, QD (50MICROGRAMS/DOSE)
     Route: 065
     Dates: start: 20220913, end: 20221011
  4. BECLOMETHASONE DIPROPIONATE [Concomitant]
     Active Substance: BECLOMETHASONE DIPROPIONATE
     Dosage: 1 DOSAGE FORM, BID
     Route: 055
     Dates: start: 20220913
  5. ALBUTEROL SULFATE [Concomitant]
     Active Substance: ALBUTEROL SULFATE
     Indication: Product used for unknown indication
     Dosage: UNK, PRN (1 TO 2 PUFFS UP TO FOUR TIMES DAILY AS REQUIRED (100MICROGRAMS/DOSE))
     Route: 055
     Dates: start: 20220913

REACTIONS (3)
  - Adverse drug reaction [Recovered/Resolved]
  - Dysphemia [Recovered/Resolved]
  - Abdominal pain [Recovered/Resolved]

NARRATIVE: CASE EVENT DATE: 20221010
